FAERS Safety Report 5318231-5 (Version None)
Quarter: 2007Q2

REPORT INFORMATION
  Report Type: 
  Country: None (occurrence: None)
  Receive Date: 20070507
  Receipt Date: 20070423
  Transmission Date: 20071010
  Serious: Yes (Hospitalization)
  Sender: FDA-Public Use
  Company Number: US-ELI_LILLY_AND_COMPANY-US200704004924

PATIENT
  Age: 86 Year
  Sex: Female
  Weight: 47.165 kg

DRUGS (4)
  1. OMEPRAZOLE [Concomitant]
  2. ENSURE                             /00472201/ [Concomitant]
  3. CYMBALTA [Suspect]
     Indication: DEPRESSION
     Dosage: 30 MG, DAILY (1/D)
     Route: 048
     Dates: start: 20050101
  4. PROZAC [Suspect]
     Indication: DEPRESSION
     Route: 048
     Dates: end: 20050101

REACTIONS (5)
  - ANOREXIA [None]
  - LOWER LIMB FRACTURE [None]
  - NAUSEA [None]
  - ULCER [None]
  - WEIGHT DECREASED [None]
